FAERS Safety Report 5943298-0 (Version None)
Quarter: 2008Q4

REPORT INFORMATION
  Report Type: 
  Country: None (occurrence: None)
  Receive Date: 20081106
  Receipt Date: 20081029
  Transmission Date: 20090506
  Serious: Yes (Other)
  Sender: FDA-Public Use
  Company Number: PHHY2008FR26783

PATIENT
  Sex: Female

DRUGS (1)
  1. ACLASTA [Suspect]
     Route: 042

REACTIONS (1)
  - FRACTURE [None]
